FAERS Safety Report 23235490 (Version 1)
Quarter: 2023Q4

REPORT INFORMATION
  Report Type: Spontaneous
  Country: IL (occurrence: IL)
  Receive Date: 20231128
  Receipt Date: 20231128
  Transmission Date: 20240110
  Serious: Yes (Other)
  Sender: FDA-Public Use
  Company Number: IL-PFIZER INC-PV202300191535

PATIENT
  Age: 34 Year
  Sex: Female

DRUGS (1)
  1. LORLATINIB [Suspect]
     Active Substance: LORLATINIB
     Dosage: UNK
     Dates: start: 2023

REACTIONS (3)
  - Hallucination [Unknown]
  - Insomnia [Unknown]
  - Aphonia [Unknown]

NARRATIVE: CASE EVENT DATE: 20230101
